FAERS Safety Report 8463305 (Version 6)
Quarter: 2013Q1

REPORT INFORMATION
  Report Type: Spontaneous
  Country: BR (occurrence: BR)
  Receive Date: 20120316
  Receipt Date: 20130130
  Transmission Date: 20140127
  Serious: Yes (Other)
  Sender: FDA-Public Use
  Company Number: BR-ROCHE-1047561

PATIENT
  Age: 19 Year
  Sex: Female
  Weight: 55 kg

DRUGS (1)
  1. ROACUTAN [Suspect]
     Indication: ACNE CYSTIC
     Route: 048
     Dates: start: 20100204, end: 20101101

REACTIONS (2)
  - Hodgkin^s disease [Not Recovered/Not Resolved]
  - Acne [Unknown]
